FAERS Safety Report 5274529-0 (Version None)
Quarter: 2007Q1

REPORT INFORMATION
  Report Type: 
  Country: None (occurrence: None)
  Receive Date: 20070323
  Receipt Date: 20070122
  Transmission Date: 20070707
  Serious: Yes (Other)
  Sender: FDA-Public Use
  Company Number: US-PFIZER INC-2007019951

PATIENT
  Sex: Male

DRUGS (1)
  1. SU-011,248 [Suspect]
     Indication: METASTATIC RENAL CELL CARCINOMA

REACTIONS (4)
  - ACTIVATED PARTIAL THROMBOPLASTIN TIME [None]
  - AUTOANTIBODY POSITIVE [None]
  - PETECHIAE [None]
  - TUMOUR HAEMORRHAGE [None]
